FAERS Safety Report 11227137 (Version 2)
Quarter: 2015Q3

REPORT INFORMATION
  Report Type: Report from Study
  Country: US (occurrence: US)
  Receive Date: 20150630
  Receipt Date: 20150723
  Transmission Date: 20151125
  Serious: Yes (Other)
  Sender: FDA-Public Use
  Company Number: US-009507513-1506USA012414

PATIENT

DRUGS (4)
  1. TEMODAR [Suspect]
     Active Substance: TEMOZOLOMIDE
     Indication: GLIOBLASTOMA MULTIFORME
     Dosage: 75 MG/M2, QD, STARTING ON 1ST DAY OF HUPO-IMRT CONTINUING FOR 28 CONSECUTIVE DAYS
     Route: 048
  2. TEMODAR [Suspect]
     Active Substance: TEMOZOLOMIDE
     Dosage: 150-200 MG/M2 ORALLY ONCE DAILY FOR 5 CONSECUTIVE DAYS EVERY 28 DAYS FOR TOTAL 6 CYCLES
     Route: 048
  3. BEVACIZUMAB [Suspect]
     Active Substance: BEVACIZUMAB
     Dosage: 10 MG/KG ON DAYS L AND 15 OF EVERY TMZ CYCLE FOR A TOTAL
     Route: 042
  4. BEVACIZUMAB [Suspect]
     Active Substance: BEVACIZUMAB
     Dosage: ADJUVANT 10 MG/KG ON DAYS 1 AND 15 OF TMZ CYCLE FOR A TOTAL OF 6 CYCLES

REACTIONS (6)
  - Cerebrovascular accident [Unknown]
  - Pulmonary embolism [Unknown]
  - Nausea [Unknown]
  - Wound dehiscence [Unknown]
  - Decreased appetite [Unknown]
  - Fatigue [Unknown]
